FAERS Safety Report 6510197-5 (Version None)
Quarter: 2009Q4

REPORT INFORMATION
  Report Type: 
  Country: None (occurrence: None)
  Receive Date: 20091221
  Receipt Date: 20091221
  Transmission Date: 20100525
  Serious: Yes (Life-Threatening)
  Sender: FDA-Public Use
  Company Number: None

PATIENT
  Age: 73 Year
  Sex: Male
  Weight: 83.4619 kg

DRUGS (1)
  1. PROVENTIL-HFA [Suspect]
     Indication: LUNG DISORDER
     Dosage: 1PUFF 3 DAYS INHAL 3 TIMES
     Route: 055
     Dates: start: 20091121, end: 20091128

REACTIONS (4)
  - DRUG ADMINISTRATION ERROR [None]
  - INFLUENZA [None]
  - PRODUCT FORMULATION ISSUE [None]
  - PRODUCT QUALITY ISSUE [None]
